FAERS Safety Report 11368804 (Version 3)
Quarter: 2015Q4

REPORT INFORMATION
  Report Type: Spontaneous
  Country: JP (occurrence: JP)
  Receive Date: 20150812
  Receipt Date: 20151124
  Transmission Date: 20160304
  Serious: Yes (Life-Threatening)
  Sender: FDA-Public Use
  Company Number: JP-AMGEN-JPNSP2015053240

PATIENT
  Age: 45 Year
  Sex: Female
  Weight: 59 kg

DRUGS (13)
  1. GASTER [Concomitant]
     Active Substance: FAMOTIDINE
     Indication: ABDOMINAL DISCOMFORT
     Dosage: 10 MG, QD
     Route: 048
     Dates: start: 20150601
  2. EPIRUBICIN HYDROCHLORIDE. [Concomitant]
     Active Substance: EPIRUBICIN HYDROCHLORIDE
     Indication: BREAST CANCER
     Dosage: 75 MG, UNK
     Route: 042
     Dates: start: 20141205, end: 20150216
  3. G-LASTA [Suspect]
     Active Substance: PEGFILGRASTIM
     Indication: COLONY STIMULATING FACTOR PROPHYLAXIS
     Dosage: 3.6 MG, UNK
     Route: 058
     Dates: start: 20150127, end: 20150623
  4. EMEND [Concomitant]
     Active Substance: APREPITANT
     Dosage: 125 MG, UNK
     Route: 048
     Dates: start: 20141205, end: 20150216
  5. DECADRON [Concomitant]
     Active Substance: DEXAMETHASONE
     Indication: PROPHYLAXIS OF NAUSEA AND VOMITING
     Dosage: 4 MG, UNK
     Route: 048
     Dates: start: 20150309, end: 20150623
  6. DEXART [Concomitant]
     Active Substance: DEXAMETHASONE SODIUM PHOSPHATE
     Indication: PROPHYLAXIS OF NAUSEA AND VOMITING
     Dosage: 3.3 MG, UNK
     Route: 042
     Dates: start: 20141205, end: 20150622
  7. EMEND [Concomitant]
     Active Substance: APREPITANT
     Indication: PROPHYLAXIS OF NAUSEA AND VOMITING
     Dosage: 80 MG, UNK
     Route: 048
     Dates: start: 20141205, end: 20150216
  8. CEFPODOXIME PROXETIL. [Concomitant]
     Active Substance: CEFPODOXIME PROXETIL
     Indication: PYREXIA
     Dosage: 100 MG, UNK
     Route: 048
     Dates: start: 20150420, end: 20150622
  9. SELBEX [Concomitant]
     Active Substance: TEPRENONE
     Indication: PYREXIA
     Dosage: 50 MG, UNK
     Route: 048
     Dates: start: 20150420, end: 20150622
  10. CYCLOPHOSPHAMIDE. [Concomitant]
     Active Substance: CYCLOPHOSPHAMIDE
     Indication: BREAST CANCER
     Dosage: 630 MG, UNK
     Route: 042
     Dates: start: 20141205, end: 20150216
  11. DOCETAXEL. [Concomitant]
     Active Substance: DOCETAXEL
     Indication: BREAST CANCER
     Dosage: 110 MG, UNK
     Route: 042
     Dates: start: 20150309, end: 20150622
  12. LOXOPROFEN NA [Concomitant]
     Active Substance: LOXOPROFEN SODIUM
     Indication: PYREXIA
     Dosage: 60 MG, UNK
     Route: 048
     Dates: start: 20150420, end: 20150622
  13. 5-FU                               /00098801/ [Concomitant]
     Active Substance: FLUOROURACIL
     Indication: BREAST CANCER
     Dosage: 630 MG, UNK
     Route: 042
     Dates: start: 20141205, end: 20150216

REACTIONS (2)
  - Pyrexia [Recovered/Resolved]
  - Capillary leak syndrome [Recovering/Resolving]

NARRATIVE: CASE EVENT DATE: 20150402
